FAERS Safety Report 8122170-4 (Version None)
Quarter: 2011Q4

REPORT INFORMATION
  Report Type: 
  Country: None (occurrence: None)
  Receive Date: 20111227
  Receipt Date: 20110912
  Transmission Date: 20120403
  Serious: No
  Sender: FDA-Public Use
  Company Number: PHHY2011US47446

PATIENT
  Age: 50 Year
  Sex: Female

DRUGS (12)
  1. LISINOPRIL [Concomitant]
  2. LYRICA [Concomitant]
  3. GILENYA [Suspect]
     Indication: MULTIPLE SCLEROSIS
     Dosage: 0.5 MG, ONCE DAILY, ORAL
     Route: 048
     Dates: start: 20110201
  4. LEXAPRO [Concomitant]
  5. COREG [Concomitant]
  6. NIFEDIAC (NIFEDIPINE) [Concomitant]
  7. LIPITOR [Concomitant]
  8. ULTRAM [Concomitant]
  9. CELEBREX [Concomitant]
  10. ADDERALL 10 [Concomitant]
  11. ROPINIROLE [Concomitant]
  12. VITAMIN D [Concomitant]

REACTIONS (5)
  - FATIGUE [None]
  - VISUAL IMPAIRMENT [None]
  - MULTIPLE SCLEROSIS RELAPSE [None]
  - COUGH [None]
  - HYPOAESTHESIA [None]
